FAERS Safety Report 5749702-5 (Version None)
Quarter: 2008Q2

REPORT INFORMATION
  Report Type: 
  Country: None (occurrence: None)
  Receive Date: 20080521
  Receipt Date: 20080521
  Transmission Date: 20081010
  Serious: Yes (Hospitalization)
  Sender: FDA-Public Use
  Company Number: None

PATIENT
  Sex: Female
  Weight: 95 kg

DRUGS (3)
  1. FLUOROURACIL [Suspect]
     Dosage: 8600 MG
  2. CISPLATIN [Suspect]
     Dosage: 81 MG
  3. ERBITUX [Suspect]
     Dosage: 537.5 MG

REACTIONS (8)
  - ABDOMINAL PAIN [None]
  - DEHYDRATION [None]
  - DIARRHOEA [None]
  - HYPOKALAEMIA [None]
  - NAUSEA [None]
  - PAIN [None]
  - SKIN IRRITATION [None]
  - VOMITING [None]
